FAERS Safety Report 11359437 (Version 3)
Quarter: 2015Q4

REPORT INFORMATION
  Report Type: Report from Study
  Country: JP (occurrence: JP)
  Receive Date: 20150807
  Receipt Date: 20151009
  Transmission Date: 20160304
  Serious: Yes (Hospitalization)
  Sender: FDA-Public Use
  Company Number: JP-ASTRAZENECA-2015SE76282

PATIENT
  Age: 51 Year
  Sex: Male
  Weight: 66 kg

DRUGS (5)
  1. SEROQUEL [Suspect]
     Active Substance: QUETIAPINE FUMARATE
     Indication: BIPOLAR DISORDER
     Dosage: OPEN LABEL STUDY DRUG OF TREATMENT PERIOD II (CONTINUOUS ADMINISTRATION PERIOD)
     Route: 048
     Dates: start: 20141024, end: 20141110
  2. WARFARIN [Concomitant]
     Active Substance: WARFARIN
     Dosage: 1 MG
     Route: 048
     Dates: start: 20150529
  3. SEROQUEL [Suspect]
     Active Substance: QUETIAPINE FUMARATE
     Indication: BIPOLAR DISORDER
     Dosage: OPEN LABEL STUDY DRUG OF TREATMENT PERIOD II (CONTINUOUS ADMINISTRATION PERIOD)
     Route: 048
     Dates: start: 20141111, end: 20150722
  4. SEROQUEL [Suspect]
     Active Substance: QUETIAPINE FUMARATE
     Indication: BIPOLAR DISORDER
     Dosage: OPEN LABEL STUDY DRUG OF TREATMENT PERIOD II (CONTINUOUS ADMINISTRATION PERIOD)
     Route: 048
     Dates: start: 20150723, end: 20150730
  5. SEROQUEL [Suspect]
     Active Substance: QUETIAPINE FUMARATE
     Indication: BIPOLAR DISORDER
     Dosage: DOUBLE-BLINDED STUDY DRUG OF TREATMENT PERIOD I
     Route: 048
     Dates: start: 20140725, end: 20141023

REACTIONS (1)
  - Atrial flutter [Recovered/Resolved]

NARRATIVE: CASE EVENT DATE: 20150529
